FAERS Safety Report 6371420-3 (Version None)
Quarter: 2009Q3

REPORT INFORMATION
  Report Type: 
  Country: None (occurrence: None)
  Receive Date: 20090923
  Receipt Date: 20080205
  Transmission Date: 20100115
  Serious: Yes (Hospitalization, Other)
  Sender: FDA-Public Use
  Company Number: US-ASTRAZENECA-2007UW09662

PATIENT
  Age: 16726 Day
  Sex: Female
  Weight: 76 kg

DRUGS (31)
  1. SEROQUEL [Suspect]
     Indication: DEPRESSION
     Dosage: 100 MG - 600 MG
     Route: 048
     Dates: start: 20000125
  2. SEROQUEL [Suspect]
     Indication: BIPOLAR DISORDER
     Dosage: 100 MG - 600 MG
     Route: 048
     Dates: start: 20000125
  3. SEROQUEL [Suspect]
     Indication: AGITATION
     Dosage: 100 MG - 600 MG
     Route: 048
     Dates: start: 20000125
  4. SEROQUEL [Suspect]
     Route: 048
     Dates: start: 20040101, end: 20050101
  5. SEROQUEL [Suspect]
     Route: 048
     Dates: start: 20040101, end: 20050101
  6. SEROQUEL [Suspect]
     Route: 048
     Dates: start: 20040101, end: 20050101
  7. BUSPAR [Concomitant]
  8. TRAZODONE HCL [Concomitant]
     Dosage: 100 MG-300 MG
  9. KLONOPIN [Concomitant]
  10. LAMICTAL [Concomitant]
  11. ATIVAN [Concomitant]
     Indication: AGITATION
     Route: 042
  12. ATIVAN [Concomitant]
     Indication: ANXIETY
     Route: 042
  13. DILAUDID [Concomitant]
     Indication: PAIN
  14. MORPHINE SULFATE INJ [Concomitant]
     Indication: PAIN
     Dosage: 2 MG - 5 MG
     Route: 042
  15. PHENERGAN [Concomitant]
     Indication: NAUSEA
     Route: 042
  16. DARVOCET-N 100 [Concomitant]
     Indication: PAIN
     Dosage: STRENGTH 100 MG, EVERY 4-6 HOURS
     Route: 048
  17. ADDERALL 10 [Concomitant]
     Dosage: 20 MG - 100 MG
     Route: 048
  18. PROZAC [Concomitant]
     Dosage: 20 MG - 40 MG
     Route: 048
  19. PAXIL [Concomitant]
  20. CYCLOBENZAPRINE [Concomitant]
  21. NEURONTIN [Concomitant]
     Indication: PAIN
     Dosage: 100 MG - 800 MG
     Route: 048
  22. NEURONTIN [Concomitant]
     Indication: CONVULSION
     Dosage: 100 MG - 800 MG
     Route: 048
  23. TRAZODONE [Concomitant]
     Dosage: 100 MG - 300 MG
  24. TRAMADOL HCL [Concomitant]
  25. TRILEPTAL [Concomitant]
  26. PREMARIN [Concomitant]
     Route: 048
  27. DEMEROL [Concomitant]
     Indication: PAIN
  28. ZOFRAN [Concomitant]
     Indication: NAUSEA
  29. DEXTROAMPHETAMINE [Concomitant]
  30. MIRTAZAPINE [Concomitant]
  31. IBUPROFEN [Concomitant]
     Route: 048

REACTIONS (2)
  - PANCREATITIS ACUTE [None]
  - WEIGHT INCREASED [None]
